FAERS Safety Report 19954243 (Version 1)
Quarter: 2021Q4

REPORT INFORMATION
  Report Type: Report from Study
  Country: IN (occurrence: IN)
  Receive Date: 20211014
  Receipt Date: 20211014
  Transmission Date: 20220303
  Serious: Yes (Other)
  Sender: FDA-Public Use
  Company Number: IN-ACCORD-241341

PATIENT
  Age: 31 Year
  Sex: Male

DRUGS (3)
  1. IRINOTECAN [Suspect]
     Active Substance: IRINOTECAN
     Indication: Testis cancer
  2. PACLITAXEL [Suspect]
     Active Substance: PACLITAXEL
     Indication: Testis cancer
  3. OXALIPLATIN [Suspect]
     Active Substance: OXALIPLATIN
     Indication: Testis cancer

REACTIONS (1)
  - Neuropathy peripheral [Unknown]
